FAERS Safety Report 18540986 (Version 2)
Quarter: 2020Q4

REPORT INFORMATION
  Report Type: Spontaneous
  Country: BR (occurrence: BR)
  Receive Date: 20201124
  Receipt Date: 20201130
  Transmission Date: 20210114
  Serious: Yes (Hospitalization, Other)
  Sender: FDA-Public Use
  Company Number: BR-DSJP-DSE-2020-135193

PATIENT
  Age: 77 Year
  Sex: Male
  Weight: 72 kg

DRUGS (4)
  1. BENICAR [Suspect]
     Active Substance: OLMESARTAN MEDOXOMIL
     Indication: HYPERTENSION
     Dosage: 40 MG
     Route: 065
     Dates: start: 201909, end: 2020
  2. BENICAR [Suspect]
     Active Substance: OLMESARTAN MEDOXOMIL
     Dosage: 20 MG
     Route: 065
     Dates: start: 20201015, end: 20201019
  3. DEPURA [Concomitant]
     Active Substance: CHOLECALCIFEROL
     Indication: OSTEOPENIA
     Dosage: 6 DROPS
     Route: 065
  4. BENICAR [Suspect]
     Active Substance: OLMESARTAN MEDOXOMIL
     Dosage: 20 MG
     Route: 065
     Dates: start: 20201025, end: 202010

REACTIONS (11)
  - Syncope [Recovered/Resolved]
  - Diarrhoea [Recovered/Resolved]
  - Vomiting [Recovered/Resolved]
  - Asthenia [Recovering/Resolving]
  - Gastritis [Recovered/Resolved]
  - Colitis [Recovered/Resolved]
  - Off label use [Recovered/Resolved]
  - Weight decreased [Recovered/Resolved]
  - Blood pressure decreased [Recovered/Resolved]
  - Wrong technique in product usage process [Recovered/Resolved]
  - Retching [Unknown]

NARRATIVE: CASE EVENT DATE: 2020
